FAERS Safety Report 17081042 (Version 1)
Quarter: 2019Q4

REPORT INFORMATION
  Report Type: Spontaneous
  Country: US (occurrence: US)
  Receive Date: 20191029
  Receipt Date: 20191029
  Transmission Date: 20200122
  Serious: Yes (Other)
  Sender: FDA-Public Use
  Company Number: None

PATIENT
  Age: 68 Year
  Sex: Female
  Weight: 65.77 kg

DRUGS (11)
  1. CITALOPRAM 20MG TABLETS [Suspect]
     Active Substance: CITALOPRAM HYDROBROMIDE
     Indication: DEPRESSION
     Dosage: ?          QUANTITY:20 MG MILLIGRAM(S);?
     Route: 048
     Dates: start: 201907, end: 20190927
  2. GLUCOSAMINE/MSM [Concomitant]
  3. CALCIUM [Concomitant]
     Active Substance: CALCIUM
  4. LEVOTHYROXINE. [Concomitant]
     Active Substance: LEVOTHYROXINE
  5. GABAPENTIN. [Concomitant]
     Active Substance: GABAPENTIN
  6. VIT D [Concomitant]
     Active Substance: VITAMIN D NOS
  7. VITAMIN C [Concomitant]
     Active Substance: ASCORBIC ACID
  8. TEMAZEPAM. [Concomitant]
     Active Substance: TEMAZEPAM
  9. CHLORTRIMETOAS [Concomitant]
  10. LEFLUROROMIDE [Concomitant]
  11. CLARINTIN [Concomitant]

REACTIONS (10)
  - Product substitution issue [None]
  - Gastrooesophageal reflux disease [None]
  - Hyperhidrosis [None]
  - Skin odour abnormal [None]
  - Flatulence [None]
  - Panic disorder [None]
  - Abdominal discomfort [None]
  - Hiccups [None]
  - Adjustment disorder with depressed mood [None]
  - Eructation [None]
